FAERS Safety Report 8781945 (Version 1)
Quarter: 2012Q4

REPORT INFORMATION
  Report Type: 
  Country: US (occurrence: US)
  Receive Date: 20120913
  Receipt Date: 20120913
  Transmission Date: 20130627
  Serious: Yes (Hospitalization)
  Sender: FDA-Public Use
  Company Number: US-VERTEX PHARMACEUTICAL INC.-2012-020157

PATIENT
  Sex: Female
  Weight: 64 kg

DRUGS (12)
  1. VX-950 [Suspect]
     Indication: HEPATITIS C
     Dosage: 750 mg, tid
     Route: 048
  2. PEGASYS [Concomitant]
     Indication: HEPATITIS C
  3. RIBASPHERE [Concomitant]
     Indication: HEPATITIS C
     Dosage: 200 mg, UNK
  4. CALTRATE                           /00751519/ [Concomitant]
  5. NAPROXEN DELAYED RELEASE [Concomitant]
     Dosage: 375 mg, UNK
  6. LORAZEPAM [Concomitant]
     Dosage: 1 mg, UNK
  7. METHOCARBAMOL [Concomitant]
     Dosage: 500 mg, UNK
  8. TRIAMCINOLON                       /00031901/ [Concomitant]
     Dosage: UNK %, UNK
  9. BENICAR HCT [Concomitant]
  10. MULTIVITAMIN                       /00097801/ [Concomitant]
  11. ESTROGEN [Concomitant]
  12. CO Q 10 [Concomitant]
     Dosage: 100 mg, UNK

REACTIONS (1)
  - Platelet count decreased [Unknown]
